FAERS Safety Report 22916464 (Version 6)
Quarter: 2024Q1

REPORT INFORMATION
  Report Type: Report from Study
  Country: CR (occurrence: CR)
  Receive Date: 20230907
  Receipt Date: 20240227
  Transmission Date: 20240410
  Serious: Yes (Other)
  Sender: FDA-Public Use
  Company Number: CR-002147023-NVSC2023CR190824

PATIENT
  Age: 55 Year
  Sex: Female

DRUGS (1)
  1. KISQALI [Suspect]
     Active Substance: RIBOCICLIB
     Indication: Breast cancer
     Dosage: 600 MG, QD
     Route: 048
     Dates: start: 20230816

REACTIONS (14)
  - Metastases to bone [Unknown]
  - Metastases to spine [Unknown]
  - Spinal fracture [Unknown]
  - Gait disturbance [Unknown]
  - Burn oral cavity [Unknown]
  - Nausea [Unknown]
  - Gastrooesophageal reflux disease [Unknown]
  - Throat irritation [Unknown]
  - Dyspepsia [Unknown]
  - Tumour marker increased [Unknown]
  - Tumour marker abnormal [Unknown]
  - Computerised tomogram abnormal [Unknown]
  - Bone lesion [Unknown]
  - Lymphadenopathy [Unknown]

NARRATIVE: CASE EVENT DATE: 20230816
